FAERS Safety Report 4292190-9 (Version None)
Quarter: 2004Q1

REPORT INFORMATION
  Report Type: 
  Country: None (occurrence: None)
  Receive Date: 20040126
  Receipt Date: 20030917
  Transmission Date: 20041129
  Serious: No
  Sender: FDA-Public Use
  Company Number: USA030843484

PATIENT
  Age: 75 Year
  Sex: Female
  Weight: 52 kg

DRUGS (5)
  1. FORTEO [Suspect]
     Indication: OSTEOPOROSIS
     Dosage: 20 UG/DAY
     Dates: start: 20030730
  2. MONOPRIL [Concomitant]
  3. NEXIUM [Concomitant]
  4. METOCLOPRAMIDE [Concomitant]
  5. DETROL (TOLTERODINE L-TARTARATE) [Concomitant]

REACTIONS (4)
  - EYE SWELLING [None]
  - FATIGUE [None]
  - HEART RATE INCREASED [None]
  - INJECTION SITE ERYTHEMA [None]
